FAERS Safety Report 11239038 (Version 1)
Quarter: 2015Q3

REPORT INFORMATION
  Report Type: Spontaneous
  Country: US (occurrence: None)
  Receive Date: 20150701
  Receipt Date: 20150701
  Transmission Date: 20151125
  Serious: Yes (Disabling, Other)
  Sender: FDA-Public Use
  Company Number: None

PATIENT
  Sex: Female
  Weight: 92.53 kg

DRUGS (14)
  1. NEVANAC [Concomitant]
     Active Substance: NEPAFENAC
  2. PREDNISOLONE ACETATE. [Concomitant]
     Active Substance: PREDNISOLONE ACETATE
  3. LATANOPROST. [Concomitant]
     Active Substance: LATANOPROST
  4. METFORMIN [Concomitant]
     Active Substance: METFORMIN HYDROCHLORIDE
  5. VITAMINS NOS [Concomitant]
     Active Substance: VITAMINS
  6. MURO/128 [Concomitant]
  7. TRIAMTERENE/HCTZ 37.5MG/25MG [Suspect]
     Active Substance: HYDROCHLOROTHIAZIDE\TRIAMTERENE
     Indication: HYPERTENSION
     Dosage: 1/2 PILL
     Route: 048
     Dates: start: 2013
  8. CPAP BREATHING MACHINE [Concomitant]
  9. OMEPRAZOLE. [Concomitant]
     Active Substance: OMEPRAZOLE
  10. VITAMIN D [Concomitant]
     Active Substance: CHOLECALCIFEROL
  11. COSOPT [Concomitant]
     Active Substance: DORZOLAMIDE HYDROCHLORIDE\TIMOLOL MALEATE
  12. CARVEDILOL. [Concomitant]
     Active Substance: CARVEDILOL
  13. ASPIRIN. [Concomitant]
     Active Substance: ASPIRIN
  14. CALCIUM 500+D [Concomitant]
     Active Substance: CALCIUM\VITAMIN D

REACTIONS (2)
  - Vision blurred [None]
  - Eye swelling [None]

NARRATIVE: CASE EVENT DATE: 2014
